FAERS Safety Report 6076258-2 (Version None)
Quarter: 2009Q1

REPORT INFORMATION
  Report Type: 
  Country: None (occurrence: None)
  Receive Date: 20090210
  Receipt Date: 20090126
  Transmission Date: 20090719
  Serious: Yes (Life-Threatening, Disabling)
  Sender: FDA-Public Use
  Company Number: 2008BI029630

PATIENT
  Age: 43 Year
  Sex: Male

DRUGS (12)
  1. ZEVALIN [Suspect]
     Indication: LYMPHOMA
     Dosage: 13.2 MBQ/KG; 1X; IV
     Route: 042
     Dates: start: 20080917, end: 20080924
  2. RITUXIMAB [Concomitant]
  3. AMARYL [Concomitant]
  4. VOGLIBOSE [Concomitant]
  5. LIPITOR [Concomitant]
  6. SUCRALFATE [Concomitant]
  7. SODIUM BICARBONATE [Concomitant]
  8. ALOSITOL [Concomitant]
  9. DEXAMETHASONE [Concomitant]
  10. ETOPOSIDE [Concomitant]
  11. IFOSFAMIDE [Concomitant]
  12. CARBOPLATIN [Concomitant]

REACTIONS (4)
  - GRANULOCYTOPENIA [None]
  - LEUKOPENIA [None]
  - LIVER DISORDER [None]
  - THROMBOCYTOPENIA [None]
